FAERS Safety Report 4266970-X (Version None)
Quarter: 2004Q1

REPORT INFORMATION
  Report Type: 
  Country: None (occurrence: None)
  Receive Date: 20040107
  Receipt Date: 20031225
  Transmission Date: 20041129
  Serious: Yes (Death)
  Sender: FDA-Public Use
  Company Number: JP-SHR-03-018195

PATIENT
  Age: 4 Year
  Sex: Female
  Weight: 18 kg

DRUGS (8)
  1. FLUDARABINE PHOSPHATE [Suspect]
     Indication: ACUTE LYMPHOCYTIC LEUKAEMIA
     Dosage: 22 MG, 1X/DAY, INTRAVENOUS
     Route: 042
     Dates: start: 20031114, end: 20031118
  2. FLUDARABINE PHOSPHATE [Suspect]
     Indication: STEM CELL TRANSPLANT
     Dosage: 22 MG, 1X/DAY, INTRAVENOUS
     Route: 042
     Dates: start: 20031114, end: 20031118
  3. THIOTEPA [Suspect]
     Indication: ACUTE LYMPHOCYTIC LEUKAEMIA
     Dosage: 180 MG, 1X/DAY, INTRAVENOUS
     Route: 042
     Dates: start: 20031115, end: 20031115
  4. THIOTEPA [Suspect]
     Indication: STEM CELL TRANSPLANT
     Dosage: 180 MG, 1X/DAY, INTRAVENOUS
     Route: 042
     Dates: start: 20031115, end: 20031115
  5. ATG (ANTITHYMOCYTE IMMUNOGLLBULIN)INJECTION [Suspect]
     Indication: ACUTE LYMPHOCYTIC LEUKAEMIA
     Dosage: 45 MG, 1X/DAY, INTRAVENOUS
     Route: 042
     Dates: start: 20031116, end: 20031119
  6. ATG (ANTITHYMOCYTE IMMUNOGLLBULIN)INJECTION [Suspect]
     Indication: STEM CELL TRANSPLANT
     Dosage: 45 MG, 1X/DAY, INTRAVENOUS
     Route: 042
     Dates: start: 20031116, end: 20031119
  7. CYCLOSPORINE [Suspect]
     Indication: STEM CELL TRANSPLANT
     Dosage: 54 MG, 1X/DAY, INTRAVENOUS
     Route: 042
     Dates: start: 20031119, end: 20031130
  8. LASIX [Concomitant]

REACTIONS (9)
  - ABDOMINAL PAIN [None]
  - CARDIAC ARREST [None]
  - INFECTION [None]
  - LIP DISCOLOURATION [None]
  - MULTI-ORGAN FAILURE [None]
  - NEUTROPHIL COUNT DECREASED [None]
  - OXYGEN SATURATION DECREASED [None]
  - SHOCK [None]
  - SYSTEMIC INFLAMMATORY RESPONSE SYNDROME [None]
